FAERS Safety Report 7145335-7 (Version None)
Quarter: 2010Q4

REPORT INFORMATION
  Report Type: 
  Country: None (occurrence: None)
  Receive Date: 20101208
  Receipt Date: 20101203
  Transmission Date: 20110411
  Serious: Yes (Other)
  Sender: FDA-Public Use
  Company Number: US-PFIZER INC-2010133577

PATIENT
  Sex: Female
  Weight: 60.771 kg

DRUGS (4)
  1. CELEBREX [Suspect]
     Indication: RHEUMATOID ARTHRITIS
     Dosage: 200 MG, DAILY
     Route: 048
     Dates: start: 20101014
  2. CELEBREX [Suspect]
     Indication: ARTHRITIS
  3. CELEBREX [Suspect]
     Indication: OSTEOARTHRITIS
  4. OXYCODONE [Concomitant]
     Dosage: 30 MG, EVERY SIX HOURS

REACTIONS (10)
  - ARTHRALGIA [None]
  - DRUG INTOLERANCE [None]
  - ECCHYMOSIS [None]
  - EYELID OEDEMA [None]
  - MUSCULOSKELETAL PAIN [None]
  - PRURITUS [None]
  - RASH [None]
  - RHEUMATOID ARTHRITIS [None]
  - SWELLING [None]
  - URTICARIA [None]
